FAERS Safety Report 9765219 (Version 1)
Quarter: 2013Q4

REPORT INFORMATION
  Report Type: Spontaneous
  Country: US (occurrence: US)
  Receive Date: 20131217
  Receipt Date: 20131217
  Transmission Date: 20140711
  Serious: No
  Sender: FDA-Public Use
  Company Number: US-GLAXOSMITHKLINE-A1037356A

PATIENT
  Age: 60 Year
  Sex: Male

DRUGS (5)
  1. SORIATANE [Suspect]
     Indication: PSORIASIS
     Dosage: 25MG TWICE PER DAY
     Route: 048
     Dates: start: 2012, end: 201305
  2. TOPROL XL [Concomitant]
  3. RAMIPRIL [Concomitant]
  4. CRESTOR [Concomitant]
  5. INSULIN [Concomitant]

REACTIONS (11)
  - Laceration [Not Recovered/Not Resolved]
  - Chapped lips [Unknown]
  - Blood glucose increased [Unknown]
  - Foreign body sensation in eyes [Unknown]
  - Nail injury [Unknown]
  - Nail disorder [Unknown]
  - Vision blurred [Unknown]
  - Night blindness [Unknown]
  - Alopecia [Unknown]
  - Hair colour changes [Unknown]
  - Hair growth abnormal [Unknown]
